FAERS Safety Report 24742039 (Version 1)
Quarter: 2024Q4

REPORT INFORMATION
  Report Type: Spontaneous
  Country: US (occurrence: None)
  Receive Date: 20241213
  Receipt Date: 20241213
  Transmission Date: 20250115
  Serious: Yes (Death)
  Sender: Public
  Company Number: None

PATIENT
  Age: 76 Year
  Sex: Male
  Weight: 73.8 kg

DRUGS (20)
  1. REVLIMID [Suspect]
     Active Substance: LENALIDOMIDE
     Indication: Plasma cell myeloma
     Dosage: 1 TOT - TOTAL DAILY ORAL?
     Route: 048
     Dates: start: 20240830, end: 20241128
  2. ACYCLOVIR [Concomitant]
     Active Substance: ACYCLOVIR
  3. ondansetron 8 mg disintegrating tablet [Concomitant]
  4. FLUCONAZOLE [Concomitant]
     Active Substance: FLUCONAZOLE
  5. FUROSEMIDE [Concomitant]
     Active Substance: FUROSEMIDE
  6. Imodium A-D 2 mg tablet [Concomitant]
  7. potassium chloride 20 mEq oral packet [Concomitant]
  8. LOPERAMIDE 2 MG CAP [Concomitant]
  9. DEXAMETHASONE [Concomitant]
     Active Substance: DEXAMETHASONE
  10. SINGULAIR [Concomitant]
     Active Substance: MONTELUKAST SODIUM
  11. ATORVASTATIN [Concomitant]
     Active Substance: ATORVASTATIN
  12. folic acid 400 mcg tablet [Concomitant]
  13. metoprolol succ 25 mg-hydrochlorothiazide 12.5 mg tablet,ext.rel 24 hr [Concomitant]
  14. Multi Vitamin 9 mg iron/15 mL oral liquid [Concomitant]
  15. cyclobenzaprine 10 mg tablet [Concomitant]
  16. dorzolamide 22.3 mg-timolol 6.8 mg/mL eye drops [Concomitant]
  17. FLUOXETINE [Concomitant]
     Active Substance: FLUOXETINE HYDROCHLORIDE
  18. Aspirin Low Dose 81 mg tablet,delayed release [Concomitant]
  19. lisinopril 20 mg-hydrochlorothiazide 12.5 mg tablet [Concomitant]
  20. Vitamin B-12 1,000 mcg tablet [Concomitant]

REACTIONS (1)
  - Death [None]

NARRATIVE: CASE EVENT DATE: 20241128
